FAERS Safety Report 8616377-7 (Version None)
Quarter: 2012Q3

REPORT INFORMATION
  Report Type: 
  Country: None (occurrence: None)
  Receive Date: 20120823
  Receipt Date: 20120816
  Transmission Date: 20120928
  Serious: Yes (Hospitalization, Other)
  Sender: FDA-Public Use
  Company Number: FR-009507513-1208FRA008809

PATIENT

DRUGS (11)
  1. LASIX [Suspect]
     Indication: HYPERTENSION
     Dosage: 40 MG, QD
     Route: 048
  2. IRBESARTAN AND HYDROCHLOROTHIAZIDE [Suspect]
     Indication: HYPERTENSION
     Dosage: 1 DF, QD
     Route: 048
  3. ALUMINUM HYDROXIDE AND MAGNESIUM TRISILICATE [Concomitant]
     Dosage: UNK
     Route: 048
  4. SITAGLIPTIN PHOSPHATE/METFORMIN HYDROCHLORIDE [Suspect]
     Indication: TYPE 2 DIABETES MELLITUS
     Dosage: 1 DF, BID
     Route: 048
     Dates: start: 20120101, end: 20120723
  5. PREVISCAN [Concomitant]
     Dosage: UNK
     Route: 048
  6. CELLUVISC [Concomitant]
     Dosage: UNK
  7. ATORVASTATIN [Suspect]
     Indication: HYPERCHOLESTEROLAEMIA
     Dosage: 10 MG, QD
     Route: 048
  8. AMITRIPTYLINE HYDROCHLORIDE [Concomitant]
     Dosage: UNK
     Route: 048
  9. AMARYL [Concomitant]
     Dosage: UNK
     Route: 048
  10. NEBIVOLOL HCL [Concomitant]
     Dosage: UNK
     Route: 048
  11. METEOXANE (AMOBARBITAL (+) ATROPINE (+) DIMETHICONE (+) HYOSCYAMINE) [Concomitant]
     Dosage: UNK
     Route: 048

REACTIONS (4)
  - HYPERLACTACIDAEMIA [None]
  - RENAL FAILURE ACUTE [None]
  - PANCREATITIS [None]
  - RENAL TUBULAR NECROSIS [None]
